FAERS Safety Report 25017486 (Version 1)
Quarter: 2025Q1

REPORT INFORMATION
  Report Type: Spontaneous
  Country: PT (occurrence: PT)
  Receive Date: 20250227
  Receipt Date: 20250227
  Transmission Date: 20250409
  Serious: Yes (Other)
  Sender: CSL BEHRING
  Company Number: PT-BEH-2025196910

PATIENT
  Sex: Male

DRUGS (3)
  1. VELTASSA [Suspect]
     Active Substance: PATIROMER
     Indication: Renin-angiotensin system inhibition
     Route: 065
     Dates: start: 20220523
  2. VELTASSA [Suspect]
     Active Substance: PATIROMER
     Route: 065
  3. VELTASSA [Suspect]
     Active Substance: PATIROMER
     Route: 065

REACTIONS (2)
  - Chronic kidney disease [Unknown]
  - Hypercalcaemia [Unknown]

NARRATIVE: CASE EVENT DATE: 20230101
